FAERS Safety Report 13110013 (Version 1)
Quarter: 2017Q1

REPORT INFORMATION
  Report Type: Spontaneous
  Country: US (occurrence: US)
  Receive Date: 20170112
  Receipt Date: 20170112
  Transmission Date: 20170428
  Serious: No
  Sender: FDA-Public Use
  Company Number: US-ROCHE-1207527

PATIENT
  Age: 81 Year
  Sex: Male

DRUGS (2)
  1. ACTILYSE [Suspect]
     Active Substance: ALTEPLASE
     Indication: ATRIAL THROMBOSIS
     Route: 042
  2. ACTILYSE [Suspect]
     Active Substance: ALTEPLASE
     Route: 040

REACTIONS (1)
  - Vessel puncture site haemorrhage [Recovered/Resolved]
